FAERS Safety Report 17580728 (Version 1)
Quarter: 2020Q1

REPORT INFORMATION
  Report Type: Spontaneous
  Country: US (occurrence: US)
  Receive Date: 20200325
  Receipt Date: 20200325
  Transmission Date: 20200409
  Serious: No
  Sender: FDA-Public Use
  Company Number: US-GLAXOSMITHKLINE-US2020047538

PATIENT
  Sex: Female

DRUGS (1)
  1. VOLTAREN [Suspect]
     Active Substance: DICLOFENAC SODIUM
     Indication: PRODUCT USED FOR UNKNOWN INDICATION
     Dosage: UNK
     Dates: start: 20200312, end: 20200312

REACTIONS (8)
  - Oesophageal discomfort [Unknown]
  - Oropharyngeal pain [Unknown]
  - Cough [Unknown]
  - Feeling abnormal [Recovering/Resolving]
  - Oropharyngeal discomfort [Recovering/Resolving]
  - Product use in unapproved indication [Unknown]
  - Expired product administered [Unknown]
  - Accidental exposure to product [Unknown]

NARRATIVE: CASE EVENT DATE: 20200312
